FAERS Safety Report 5689653-8 (Version None)
Quarter: 2008Q1

REPORT INFORMATION
  Report Type: 
  Country: None (occurrence: None)
  Receive Date: 20080331
  Receipt Date: 20080305
  Transmission Date: 20080703
  Serious: No
  Sender: FDA-Public Use
  Company Number: US-BOEHRINGER INGELHEIM GMBH, GERMANY-2008-BP-03446BP

PATIENT
  Sex: Female

DRUGS (5)
  1. IPRATROPIUM BROMIDE [Suspect]
     Indication: CHRONIC OBSTRUCTIVE PULMONARY DISEASE
     Route: 055
     Dates: start: 20080101, end: 20080101
  2. ALBUTEROL [Concomitant]
  3. FLOVENT [Concomitant]
  4. PREDNISONE TAB [Concomitant]
     Route: 048
  5. XANAX [Concomitant]
     Indication: ANXIETY
     Route: 048

REACTIONS (1)
  - RESPIRATORY TRACT IRRITATION [None]
